FAERS Safety Report 26022608 (Version 2)
Quarter: 2025Q4

REPORT INFORMATION
  Report Type: Spontaneous
  Country: JP (occurrence: JP)
  Receive Date: 20251110
  Receipt Date: 20251209
  Transmission Date: 20260118
  Serious: No
  Sender: MYLAN
  Company Number: JP-MYLANLABS-2025M1091332

PATIENT
  Age: 4 Year
  Sex: Male

DRUGS (1)
  1. EPIPEN [Suspect]
     Active Substance: EPINEPHRINE
     Indication: Product used for unknown indication
     Dosage: UNK

REACTIONS (8)
  - Injection site pain [Recovered/Resolved]
  - Gait disturbance [Recovered/Resolved]
  - Injection site swelling [Recovered/Resolved]
  - Injection site bruising [Recovered/Resolved]
  - Injury associated with device [Recovered/Resolved]
  - Accidental exposure to product by child [Unknown]
  - Needle issue [Unknown]
  - Embedded device [Unknown]

NARRATIVE: CASE EVENT DATE: 20241127
